FAERS Safety Report 23186412 (Version 5)
Quarter: 2025Q3

REPORT INFORMATION
  Report Type: Spontaneous
  Country: PK (occurrence: PK)
  Receive Date: 20231115
  Receipt Date: 20250821
  Transmission Date: 20251021
  Serious: Yes (Other)
  Sender: AMGEN
  Company Number: PK-PFIZER INC-PV202200101077

PATIENT
  Age: 46 Year
  Sex: Male

DRUGS (22)
  1. ENBREL [Suspect]
     Active Substance: ETANERCEPT
     Indication: Ankylosing spondylitis
     Dosage: UNK, EVERY 3 WEEKS
     Route: 065
     Dates: start: 2021
  2. ENBREL [Suspect]
     Active Substance: ETANERCEPT
     Dosage: 50 MG, EVERY 4 WEEKS
     Route: 058
     Dates: start: 20221208, end: 2022
  3. METHOTREXATE SODIUM [Suspect]
     Active Substance: METHOTREXATE SODIUM
     Indication: Product used for unknown indication
     Route: 065
  4. FEBUXOSTAT [Suspect]
     Active Substance: FEBUXOSTAT
     Indication: Blood uric acid increased
     Dosage: 50 MG, 1X/DAY (IN THE EVENING)
     Route: 065
  5. FEBUXOSTAT [Suspect]
     Active Substance: FEBUXOSTAT
     Dosage: 40 MG, 1X/DAY (IN THE EVENING)
     Route: 065
  6. FEBUXOSTAT [Suspect]
     Active Substance: FEBUXOSTAT
     Dosage: 80 MG, 1X/DAY  (IN THE EVENING)
     Route: 065
  7. SULFASALAZINE [Suspect]
     Active Substance: SULFASALAZINE
     Indication: Product used for unknown indication
     Route: 065
  8. PREGABALIN [Suspect]
     Active Substance: PREGABALIN
     Indication: Product used for unknown indication
     Dosage: 50 MG, 2X/DAY (1+0+1)
     Route: 065
  9. D max [Concomitant]
     Dosage: UNK, 1X/DAY (IN THE EVENING, AFTER FOOD)
  10. MINERALS\VITAMINS [Concomitant]
     Active Substance: MINERALS\VITAMINS
     Dosage: 1+0+0
  11. Fenoget [Concomitant]
     Dosage: (200MG) 0+0+1
  12. Dexxoo [Concomitant]
     Dosage: (30MG) 1+0+0
  13. ESCITALOPRAM OXALATE [Concomitant]
     Active Substance: ESCITALOPRAM OXALATE
     Dosage: 10 MG, 1X/DAY (IN THE MORNING)
  14. ESCITALOPRAM OXALATE [Concomitant]
     Active Substance: ESCITALOPRAM OXALATE
     Dosage: 20 MG, 1X/DAY (IN THE MORNING)
  15. ALPRAZOLAM [Concomitant]
     Active Substance: ALPRAZOLAM
     Dosage: (0.5MG) 0+0+1
  16. MINERALS\VITAMINS [Concomitant]
     Active Substance: MINERALS\VITAMINS
     Dosage: UNK, 1X/DAY (IN THE MORNING)
  17. Telmis [Concomitant]
     Dosage: 40 MG, 1X/DAY (IN THE EVENING)
  18. BISOPROLOL FUMARATE [Concomitant]
     Active Substance: BISOPROLOL FUMARATE
     Dosage: 5 MG, 1X/DAY (IN THE MORNING)
  19. Ascard [Concomitant]
     Dosage: 75 MG, 1X/DAY (IN THE MORNING)
  20. Fortius [Concomitant]
     Dosage: 20 MG, 1X/DAY (IN THE EVENING)
  21. GLUCOPHAGE XR [Concomitant]
     Active Substance: METFORMIN HYDROCHLORIDE
     Dosage: UNK, 1X/DAY (500, 0+0+1)
  22. BISOPROLOL FUMARATE [Concomitant]
     Active Substance: BISOPROLOL FUMARATE
     Dosage: 5 MG, 1X/DAY (1,0,0)

REACTIONS (13)
  - Polyarthritis [Unknown]
  - Uveitis [Unknown]
  - Blood thyroid stimulating hormone increased [Unknown]
  - Blood creatine increased [Unknown]
  - Blood triglycerides increased [Unknown]
  - Back pain [Recovered/Resolved]
  - Dizziness [Unknown]
  - Insomnia [Unknown]
  - Metabolic disorder [Unknown]
  - Hepatic steatosis [Unknown]
  - Glucose tolerance impaired [Unknown]
  - Blood pressure increased [Unknown]
  - Off label use [Unknown]

NARRATIVE: CASE EVENT DATE: 20210101
